FAERS Safety Report 10240556 (Version 1)
Quarter: 2014Q2

REPORT INFORMATION
  Report Type: Spontaneous
  Country: RO (occurrence: RO)
  Receive Date: 20140617
  Receipt Date: 20140617
  Transmission Date: 20141212
  Serious: Yes (Disabling)
  Sender: FDA-Public Use
  Company Number: RO-RANBAXY-2014RR-81953

PATIENT
  Age: 42 Year
  Sex: Male

DRUGS (4)
  1. KLABAX [Suspect]
     Indication: TUBERCULOSIS
     Dosage: 1000 MG, DAILY
     Route: 048
     Dates: start: 20121116
  2. OFLOXACIN [Concomitant]
     Indication: PULMONARY TUBERCULOSIS
     Dosage: 800 MG, DAILY
     Route: 048
     Dates: start: 20121106
  3. ETHIONAMIDE [Concomitant]
     Indication: PULMONARY TUBERCULOSIS
     Dosage: 750 MG, DAILY
     Route: 048
     Dates: start: 20121106
  4. CYCLOSERINE [Concomitant]
     Indication: PULMONARY TUBERCULOSIS
     Dosage: 750 MG, DAILY
     Route: 048
     Dates: start: 20121106

REACTIONS (1)
  - Pruritus [Recovered/Resolved]
